FAERS Safety Report 25681715 (Version 1)
Quarter: 2025Q3

REPORT INFORMATION
  Report Type: Spontaneous
  Country: US (occurrence: None)
  Receive Date: 20250813
  Receipt Date: 20250813
  Transmission Date: 20251020
  Serious: No
  Sender: FDA-CTU
  Company Number: None

PATIENT
  Age: 49 Year
  Sex: Female
  Weight: 78.02 kg

DRUGS (1)
  1. UBRELVY [Suspect]
     Active Substance: UBROGEPANT
     Indication: Migraine
     Route: 048
     Dates: start: 20250701, end: 20250801

REACTIONS (4)
  - Hypersensitivity [None]
  - Pruritus [None]
  - Rash [None]
  - Thermal burn [None]

NARRATIVE: CASE EVENT DATE: 20250701
